FAERS Safety Report 14333676 (Version 2)
Quarter: 2018Q1

REPORT INFORMATION
  Report Type: Spontaneous
  Country: CN (occurrence: CN)
  Receive Date: 20171228
  Receipt Date: 20180105
  Transmission Date: 20180509
  Serious: Yes (Hospitalization, Other)
  Sender: FDA-Public Use
  Company Number: CN-PFIZER INC-2017553432

PATIENT
  Age: 17 Year
  Sex: Male

DRUGS (2)
  1. CELEBREX [Suspect]
     Active Substance: CELECOXIB
     Indication: PAIN
     Dosage: 200 MG, 1X/DAY
     Route: 048
     Dates: start: 20171206
  2. AESCUVEN FORTE [Concomitant]
     Active Substance: HERBALS

REACTIONS (5)
  - Gastrointestinal haemorrhage [Unknown]
  - Rash [Unknown]
  - Henoch-Schonlein purpura [Unknown]
  - Shock [Unknown]
  - Abdominal pain [Unknown]

NARRATIVE: CASE EVENT DATE: 201712
